FAERS Safety Report 19659789 (Version 1)
Quarter: 2021Q3

REPORT INFORMATION
  Report Type: Spontaneous
  Country: IT (occurrence: IT)
  Receive Date: 20210805
  Receipt Date: 20210805
  Transmission Date: 20211014
  Serious: Yes (Other)
  Sender: FDA-Public Use
  Company Number: IT-SA-2021SA254376

PATIENT
  Age: 67 Year
  Sex: Male

DRUGS (2)
  1. PROCAPTAN [PERINDOPRIL ERBUMINE] [Concomitant]
     Dosage: UNK
     Route: 065
  2. OMNIC [Suspect]
     Active Substance: TAMSULOSIN HYDROCHLORIDE
     Indication: BENIGN PROSTATIC HYPERPLASIA
     Dosage: 2 DF, TOTAL
     Route: 048
     Dates: start: 20210710, end: 20210712

REACTIONS (3)
  - Tachycardia [Recovering/Resolving]
  - Atrial flutter [Recovering/Resolving]
  - Orthostatic hypotension [Recovering/Resolving]

NARRATIVE: CASE EVENT DATE: 20210710
